FAERS Safety Report 23157362 (Version 1)
Quarter: 2023Q4

REPORT INFORMATION
  Report Type: Spontaneous
  Country: BA (occurrence: BA)
  Receive Date: 20231108
  Receipt Date: 20231108
  Transmission Date: 20240109
  Serious: Yes (Death, Other)
  Sender: FDA-Public Use
  Company Number: BA-JNJFOC-20231116932

PATIENT
  Age: 27 Year
  Sex: Female

DRUGS (3)
  1. REMICADE [Suspect]
     Active Substance: INFLIXIMAB
     Indication: Behcet^s syndrome
     Route: 041
  2. AZATHIOPRINE [Concomitant]
     Active Substance: AZATHIOPRINE
  3. METHYLPREDNISOLONE [Concomitant]
     Active Substance: METHYLPREDNISOLONE

REACTIONS (8)
  - Septic shock [Fatal]
  - Small intestinal perforation [Unknown]
  - Pneumonia [Unknown]
  - Pancytopenia [Unknown]
  - Tuberculosis [Unknown]
  - Vasculitis [Unknown]
  - Staphylococcal skin infection [Unknown]
  - Off label use [Unknown]

NARRATIVE: CASE EVENT DATE: 20220201
